FAERS Safety Report 9563856 (Version 1)
Quarter: 2013Q1

REPORT INFORMATION
  Report Type: Spontaneous
  Country: US (occurrence: None)
  Receive Date: 20121120
  Receipt Date: 20121120
  Transmission Date: 20140127
  Serious: No
  Sender: FDA-Public Use
  Company Number: 1000038222

PATIENT
  Sex: Female

DRUGS (3)
  1. VIIBRYD [Suspect]
     Indication: DEPRESSION
     Route: 048
     Dates: start: 20120812, end: 20120818
  2. CLONAZEPAM [Concomitant]
  3. VITAMINS NOS [Concomitant]

REACTIONS (10)
  - Anxiety [None]
  - Irritability [None]
  - Affective disorder [None]
  - Agitation [None]
  - Confusional state [None]
  - Headache [None]
  - Lethargy [None]
  - Emotional disorder [None]
  - Insomnia [None]
  - Tinnitus [None]
